FAERS Safety Report 17795600 (Version 6)
Quarter: 2020Q3

REPORT INFORMATION
  Report Type: Report from Study
  Country: HU (occurrence: HU)
  Receive Date: 20200516
  Receipt Date: 20200908
  Transmission Date: 20201102
  Serious: Yes (Other)
  Sender: FDA-Public Use
  Company Number: HU-AMGEN-HUNNI2019177372

PATIENT
  Age: 53 Year
  Sex: Male
  Weight: 76 kg

DRUGS (10)
  1. KVENTIAX [Concomitant]
     Active Substance: QUETIAPINE FUMARATE
     Dosage: 1 UNK
     Route: 048
     Dates: start: 201808
  2. LEUKOVORIN [Concomitant]
     Active Substance: LEUCOVORIN SODIUM
     Indication: COLORECTAL CANCER METASTATIC
     Dosage: UNK
     Dates: start: 20190502, end: 20200722
  3. 5?FU [FLUOROURACIL] [Concomitant]
     Active Substance: FLUOROURACIL
     Indication: COLORECTAL CANCER METASTATIC
     Dosage: UNK
     Dates: start: 20190502, end: 20200722
  4. PANITUMUMAB [Suspect]
     Active Substance: PANITUMUMAB
     Indication: COLORECTAL CANCER METASTATIC
     Dosage: 444 MILLIGRAM
     Route: 042
     Dates: start: 20190212
  5. PANITUMUMAB [Suspect]
     Active Substance: PANITUMUMAB
     Dosage: 480 MILLIGRAM
     Route: 042
  6. PANITUMUMAB [Suspect]
     Active Substance: PANITUMUMAB
     Dosage: UNK
     Route: 042
  7. KEMADRIN [Concomitant]
     Active Substance: PROCYCLIDINE HYDROCHLORIDE
     Dosage: 1 UNK
     Route: 048
     Dates: start: 201808
  8. HELEX [Concomitant]
     Active Substance: ALPRAZOLAM
     Dosage: 1 UNK
     Route: 048
     Dates: start: 201808
  9. OXALIPLATIN. [Concomitant]
     Active Substance: OXALIPLATIN
     Indication: COLORECTAL CANCER METASTATIC
     Dosage: UNK
     Dates: start: 20190502, end: 20200707
  10. YAROCEN [Concomitant]
     Active Substance: MIRTAZAPINE
     Dosage: 1 UNK
     Route: 048
     Dates: start: 201808

REACTIONS (2)
  - Thrombocytopenia [Recovered/Resolved]
  - Mucosal inflammation [Recovered/Resolved]

NARRATIVE: CASE EVENT DATE: 20191017
